FAERS Safety Report 5016741-1 (Version None)
Quarter: 2006Q2

REPORT INFORMATION
  Report Type: 
  Country: None (occurrence: None)
  Receive Date: 20060602
  Receipt Date: 20060227
  Transmission Date: 20061013
  Serious: No
  Sender: FDA-Public Use
  Company Number: US-GLAXOSMITHKLINE-A0595291A

PATIENT
  Age: 3 Week
  Sex: Female

DRUGS (3)
  1. AUGMENTIN '125' [Suspect]
     Dosage: .5TSP TWICE PER DAY
     Route: 048
     Dates: start: 20060206, end: 20060213
  2. PULMICORT [Concomitant]
  3. ZAPONEX [Concomitant]

REACTIONS (2)
  - ACNE [None]
  - RASH [None]
